FAERS Safety Report 4711012-2 (Version None)
Quarter: 2005Q3

REPORT INFORMATION
  Report Type: 
  Country: None (occurrence: None)
  Receive Date: 20050708
  Receipt Date: 20050627
  Transmission Date: 20060218
  Serious: Yes (Death, Hospitalization, Other)
  Sender: FDA-Public Use
  Company Number: JP-2005-000051

PATIENT
  Age: 41 Year
  Sex: Female
  Weight: 56 kg

DRUGS (4)
  1. FLUDARA [Suspect]
     Indication: ALLOGENIC BONE MARROW TRANSPLANTATION THERAPY
     Dosage: SEE IMAGE
     Route: 042
     Dates: start: 20040723, end: 20040728
  2. FLUDARA [Suspect]
     Indication: ALLOGENIC BONE MARROW TRANSPLANTATION THERAPY
     Dosage: SEE IMAGE
     Route: 042
     Dates: start: 20040930, end: 20041002
  3. CYTARABINE [Concomitant]
  4. ETOPOSIDE [Concomitant]

REACTIONS (30)
  - ASCITES [None]
  - ASTERIXIS [None]
  - BK VIRUS INFECTION [None]
  - CATHETER RELATED INFECTION [None]
  - CHOLANGITIS [None]
  - CONDITION AGGRAVATED [None]
  - DIARRHOEA [None]
  - GASTROINTESTINAL HYPOMOTILITY [None]
  - GRAFT VERSUS HOST DISEASE [None]
  - HAEMOLYTIC ANAEMIA [None]
  - HALLUCINATION [None]
  - HEPATIC ENCEPHALOPATHY [None]
  - HISTIOCYTOSIS HAEMATOPHAGIC [None]
  - HYPERAMMONAEMIA [None]
  - LABORATORY TEST ABNORMAL [None]
  - LOSS OF CONSCIOUSNESS [None]
  - LYMPHOMA [None]
  - NEUTROPENIA [None]
  - PALMAR ERYTHEMA [None]
  - PERIPHERAL BLOOD STEM CELL APHERESIS [None]
  - PLATELET COUNT DECREASED [None]
  - RASH [None]
  - RESTLESSNESS [None]
  - SPINAL COMPRESSION FRACTURE [None]
  - SPLENOMEGALY [None]
  - STAPHYLOCOCCAL INFECTION [None]
  - THROMBOTIC MICROANGIOPATHY [None]
  - TRANSPLANT REJECTION [None]
  - VENOOCCLUSIVE LIVER DISEASE [None]
  - VIRAL HAEMORRHAGIC CYSTITIS [None]
